FAERS Safety Report 18636451 (Version 8)
Quarter: 2021Q2

REPORT INFORMATION
  Report Type: Report from Study
  Country: US (occurrence: US)
  Receive Date: 20201218
  Receipt Date: 20210531
  Transmission Date: 20210717
  Serious: Yes (Hospitalization)
  Sender: FDA-Public Use
  Company Number: US-ROCHE-2711333

PATIENT
  Age: 23 Year
  Sex: Female
  Weight: 42.8 kg

DRUGS (65)
  1. NITROGLYCERIN. [Concomitant]
     Active Substance: NITROGLYCERIN
     Indication: PROCTALGIA
     Route: 054
     Dates: start: 20201021
  2. ATIVAN [Concomitant]
     Active Substance: LORAZEPAM
     Indication: SEIZURE
     Dates: start: 20201210
  3. LOVENOX [Concomitant]
     Active Substance: ENOXAPARIN SODIUM
     Dates: start: 20201111
  4. MOUTH KOTE [Concomitant]
     Dates: start: 20201112, end: 20201112
  5. IOHEXOL [Concomitant]
     Active Substance: IOHEXOL
     Dates: start: 20201217, end: 20201217
  6. NEURONTIN [Concomitant]
     Active Substance: GABAPENTIN
     Indication: NEUROPATHY PERIPHERAL
     Dates: start: 20201018
  7. NITROGLYCERIN. [Concomitant]
     Active Substance: NITROGLYCERIN
     Dosage: 0.2%
     Route: 054
     Dates: start: 20201111
  8. METHYLPREDNISOLONE. [Concomitant]
     Active Substance: METHYLPREDNISOLONE
     Indication: PREMEDICATION
     Route: 042
     Dates: start: 20201029, end: 20201029
  9. METHYLPREDNISOLONE. [Concomitant]
     Active Substance: METHYLPREDNISOLONE
     Route: 042
     Dates: start: 20201111, end: 20201111
  10. DIPHENHYDRAMINE. [Concomitant]
     Active Substance: DIPHENHYDRAMINE
     Indication: PREMEDICATION
     Route: 042
     Dates: start: 20201029, end: 20201029
  11. LIDOCAINE. [Concomitant]
     Active Substance: LIDOCAINE
     Dates: start: 20201217, end: 20201217
  12. MICRO?K [Concomitant]
     Active Substance: POTASSIUM CHLORIDE
     Dates: start: 20201115, end: 20201115
  13. BEN GAY [Concomitant]
     Indication: BACK PAIN
     Dates: start: 20201214, end: 20201216
  14. ZOFRAN [Concomitant]
     Active Substance: ONDANSETRON HYDROCHLORIDE
     Indication: VOMITING
     Dates: start: 20201201, end: 20201201
  15. ZOFRAN [Concomitant]
     Active Substance: ONDANSETRON HYDROCHLORIDE
     Indication: PROPHYLAXIS
     Dates: start: 20201117, end: 20201117
  16. DIPHENHYDRAMINE. [Concomitant]
     Active Substance: DIPHENHYDRAMINE
     Route: 042
     Dates: start: 20201030, end: 20201030
  17. DIPHENHYDRAMINE. [Concomitant]
     Active Substance: DIPHENHYDRAMINE
     Route: 042
     Dates: start: 20201221, end: 20201221
  18. ACETAMINOPHEN. [Concomitant]
     Active Substance: ACETAMINOPHEN
     Indication: PREMEDICATION
     Route: 048
     Dates: start: 20201029, end: 20201029
  19. ATEZOLIZUMAB. [Suspect]
     Active Substance: ATEZOLIZUMAB
     Indication: COLORECTAL ADENOCARCINOMA
     Dosage: ATEZOLIZUMAB WILL BE ADMINISTERED AT A FIXED DOSE OF 1200 MG BY IV INFUSION ON DAY 1 OF EACH 21?DAY
     Route: 041
     Dates: start: 20201111
  20. LEXAPRO [Concomitant]
     Active Substance: ESCITALOPRAM OXALATE
     Indication: ANXIETY
     Dates: start: 20201021
  21. DILAUDID [Concomitant]
     Active Substance: HYDROMORPHONE HYDROCHLORIDE
     Dates: start: 20201114, end: 20201117
  22. IMODIUM A?D [Concomitant]
     Active Substance: LOPERAMIDE HYDROCHLORIDE
     Indication: PROPHYLAXIS AGAINST DIARRHOEA
     Dates: start: 20200911
  23. ACETAMINOPHEN. [Concomitant]
     Active Substance: ACETAMINOPHEN
     Indication: PYREXIA
     Route: 048
     Dates: start: 20201030, end: 20201030
  24. ACETAMINOPHEN. [Concomitant]
     Active Substance: ACETAMINOPHEN
     Route: 048
     Dates: start: 20201201, end: 20201201
  25. SODIUM PHOSPHATE [Concomitant]
     Active Substance: SODIUM PHOSPHATE
     Indication: COLONOSCOPY
     Dates: start: 20201117, end: 20201117
  26. NARCAN [Concomitant]
     Active Substance: NALOXONE HYDROCHLORIDE
     Indication: PROPHYLAXIS
     Dates: start: 20201023
  27. DILAUDID [Concomitant]
     Active Substance: HYDROMORPHONE HYDROCHLORIDE
     Dates: start: 20201118, end: 20201119
  28. METHYLPREDNISOLONE. [Concomitant]
     Active Substance: METHYLPREDNISOLONE
     Route: 042
     Dates: start: 20201111, end: 20201111
  29. DIPHENHYDRAMINE. [Concomitant]
     Active Substance: DIPHENHYDRAMINE
     Route: 042
     Dates: start: 20201201, end: 20201201
  30. LIDOCAINE. [Concomitant]
     Active Substance: LIDOCAINE
     Indication: PROCTALGIA
     Dosage: 2% JELLY
     Dates: start: 20201111
  31. KEPPRA [Concomitant]
     Active Substance: LEVETIRACETAM
     Indication: EPILEPSY
     Dates: start: 20201111
  32. FLAGYL [Concomitant]
     Active Substance: METRONIDAZOLE\METRONIDAZOLE HYDROCHLORIDE
     Dates: start: 20201112
  33. PANTOPRAZOLE [Concomitant]
     Active Substance: PANTOPRAZOLE
     Indication: NORMOCYTIC ANAEMIA
     Dates: start: 20201115, end: 20201119
  34. NEURONTIN [Concomitant]
     Active Substance: GABAPENTIN
     Dates: start: 20201112
  35. DILAUDID [Concomitant]
     Active Substance: HYDROMORPHONE HYDROCHLORIDE
     Indication: PROCTALGIA
     Dates: start: 20201112
  36. ZOFRAN [Concomitant]
     Active Substance: ONDANSETRON HYDROCHLORIDE
     Indication: NAUSEA
     Dates: start: 20200914
  37. METHYLPREDNISOLONE. [Concomitant]
     Active Substance: METHYLPREDNISOLONE
     Route: 042
     Dates: start: 20201112, end: 20201112
  38. DIPHENHYDRAMINE. [Concomitant]
     Active Substance: DIPHENHYDRAMINE
     Route: 042
     Dates: start: 20201111, end: 20201111
  39. ACETAMINOPHEN. [Concomitant]
     Active Substance: ACETAMINOPHEN
     Dates: start: 20201113, end: 20201113
  40. LACTATED RINGERS SOLUTION [Concomitant]
     Active Substance: CALCIUM CHLORIDE\POTASSIUM CHLORIDE\SODIUM CHLORIDE\SODIUM LACTATE
     Dates: start: 20201110, end: 20201111
  41. MICRO?K [Concomitant]
     Active Substance: POTASSIUM CHLORIDE
     Dates: start: 20201116, end: 20201116
  42. MICRO?K [Concomitant]
     Active Substance: POTASSIUM CHLORIDE
     Dates: start: 20201118, end: 20201118
  43. PAMELOR [Concomitant]
     Active Substance: NORTRIPTYLINE HYDROCHLORIDE
     Indication: DEPRESSION
     Dates: start: 20201213, end: 20201216
  44. DOLOPHINE [Concomitant]
     Active Substance: METHADONE HYDROCHLORIDE
     Indication: PAIN
     Route: 048
     Dates: start: 20201215, end: 20201217
  45. NACL [Concomitant]
     Active Substance: SODIUM CHLORIDE
     Dates: start: 20201221, end: 20201221
  46. DILAUDID [Concomitant]
     Active Substance: HYDROMORPHONE HYDROCHLORIDE
     Indication: PAIN
     Dates: start: 20201021
  47. METHYLPREDNISOLONE. [Concomitant]
     Active Substance: METHYLPREDNISOLONE
     Route: 042
     Dates: start: 20201030, end: 20201030
  48. ACETAMINOPHEN. [Concomitant]
     Active Substance: ACETAMINOPHEN
     Route: 048
     Dates: start: 20201111, end: 20201111
  49. DIPRIVAN [Concomitant]
     Active Substance: PROPOFOL
     Dates: start: 20201117, end: 20201117
  50. MICRO?K [Concomitant]
     Active Substance: POTASSIUM CHLORIDE
     Dates: start: 20201112, end: 20201112
  51. PANTOPRAZOLE [Concomitant]
     Active Substance: PANTOPRAZOLE
     Indication: RECTAL HAEMORRHAGE
  52. GABAPENTIN. [Concomitant]
     Active Substance: GABAPENTIN
     Indication: NEURALGIA
     Dosage: ANTICONVULSANT
     Dates: start: 20201209
  53. RO6958688 (T?CELL BISPECIFIC MONOCLONAL ANTIBODY) [Suspect]
     Active Substance: CIBISATAMAB
     Indication: COLORECTAL ADENOCARCINOMA
     Dosage: WILL BE ADMINISTERED AT A FIXED DOSE OF 100 MG BY IV INFUSION ON DAY 1 OF EACH 21?DAY CYCLE UNTIL RA
     Route: 042
     Dates: start: 20201111
  54. OBINUTUZUMAB. [Suspect]
     Active Substance: OBINUTUZUMAB
     Indication: COLORECTAL ADENOCARCINOMA
     Dosage: 2 WEEKS BEFORE CYCLE 1, DAY 1 (CYCLE = 21 DAYS).?ON 30/OCT/2020, AT 11:11 AM RECEIVED LAST DOSE OF O
     Route: 042
     Dates: start: 20201029
  55. LEXAPRO [Concomitant]
     Active Substance: ESCITALOPRAM OXALATE
     Indication: DEPRESSION
     Dates: start: 20201210
  56. DILAUDID [Concomitant]
     Active Substance: HYDROMORPHONE HYDROCHLORIDE
     Dates: start: 20201113, end: 20201113
  57. ATIVAN [Concomitant]
     Active Substance: LORAZEPAM
     Indication: ANXIETY
     Dates: start: 20201021
  58. METHYLPREDNISOLONE. [Concomitant]
     Active Substance: METHYLPREDNISOLONE
     Route: 042
     Dates: start: 20201201, end: 20201201
  59. METHYLPREDNISOLONE. [Concomitant]
     Active Substance: METHYLPREDNISOLONE
     Route: 042
     Dates: start: 20201221, end: 20201221
  60. ACETAMINOPHEN. [Concomitant]
     Active Substance: ACETAMINOPHEN
     Route: 048
     Dates: start: 20201221, end: 20201221
  61. MAXIPIME [Concomitant]
     Active Substance: CEFEPIME HYDROCHLORIDE
     Dates: start: 20201112
  62. INDOMETACIN [Concomitant]
     Active Substance: INDOMETHACIN
     Indication: PREMEDICATION
     Route: 048
     Dates: start: 20201111, end: 20201111
  63. IOHEXOL [Concomitant]
     Active Substance: IOHEXOL
     Indication: NERVE BLOCK
     Dates: start: 20201119, end: 20201119
  64. BACLOFEN. [Concomitant]
     Active Substance: BACLOFEN
     Dates: start: 20201118, end: 20201119
  65. K?DUR [Concomitant]
     Active Substance: POTASSIUM CHLORIDE
     Dates: start: 20201115, end: 20201115

REACTIONS (3)
  - Tumour inflammation [Recovered/Resolved]
  - Proctalgia [Recovered/Resolved]
  - Proctalgia [Recovered/Resolved]

NARRATIVE: CASE EVENT DATE: 20201105
